FAERS Safety Report 14699900 (Version 5)
Quarter: 2019Q3

REPORT INFORMATION
  Report Type: Spontaneous
  Country: US (occurrence: US)
  Receive Date: 20180330
  Receipt Date: 20190703
  Transmission Date: 20191004
  Serious: Yes (Hospitalization, Other)
  Sender: FDA-Public Use
  Company Number: US-DSJP-DSU-2017-154120

PATIENT

DRUGS (2)
  1. BENICAR [Suspect]
     Active Substance: OLMESARTAN MEDOXOMIL
     Indication: PRODUCT USED FOR UNKNOWN INDICATION
     Dosage: 5 MG, QD
     Route: 048
     Dates: start: 20100607, end: 2013
  2. BENICAR [Suspect]
     Active Substance: OLMESARTAN MEDOXOMIL
     Dosage: 5 MG, QD
     Route: 048
     Dates: start: 2013, end: 20150716

REACTIONS (5)
  - Gastrooesophageal reflux disease [Unknown]
  - Colitis ulcerative [Recovering/Resolving]
  - Sprue-like enteropathy [Recovering/Resolving]
  - Rectal haemorrhage [Not Recovered/Not Resolved]
  - Large intestinal ulcer [Unknown]

NARRATIVE: CASE EVENT DATE: 201105
